FAERS Safety Report 20748583 (Version 1)
Quarter: 2022Q2

REPORT INFORMATION
  Report Type: Spontaneous
  Country: RU (occurrence: RU)
  Receive Date: 20220426
  Receipt Date: 20220426
  Transmission Date: 20220721
  Serious: Yes (Other)
  Sender: FDA-Public Use
  Company Number: RU-BEH-2022144612

PATIENT
  Age: 17 Year
  Sex: Male
  Weight: 76 kg

DRUGS (6)
  1. ALBUREX [Suspect]
     Active Substance: ALBUMIN HUMAN
     Indication: Hypoalbuminaemia
     Dosage: 20 GRAM, QD
     Route: 042
     Dates: start: 20200914, end: 20200914
  2. CEFTRIAXONE [Suspect]
     Active Substance: CEFTRIAXONE
     Indication: Pneumonia
     Dosage: 2 GRAM, QD
     Route: 042
     Dates: start: 20200912, end: 20200915
  3. IRON POLYMALTOSE [Concomitant]
     Active Substance: IRON POLYMALTOSE
     Indication: Nephrogenic anaemia
     Dosage: 200 MILLIGRAM
     Route: 048
     Dates: start: 20200912
  4. ERALFON [Concomitant]
     Indication: Nephrogenic anaemia
     Dosage: 4000 INTERNATIONAL UNIT, QD
     Route: 058
     Dates: start: 20200912
  5. CALCIUM CHLORIDE [Concomitant]
     Active Substance: CALCIUM CHLORIDE
     Indication: Hypocalcaemia
     Dosage: 2 GRAM
     Route: 042
     Dates: start: 20200912, end: 20200914
  6. FUROSEMIDE [Concomitant]
     Active Substance: FUROSEMIDE
     Indication: End stage renal disease
     Dosage: 80 MILLIGRAM
     Route: 065
     Dates: start: 20200914, end: 20200914

REACTIONS (2)
  - Pyrexia [Recovered/Resolved]
  - Urticaria [Recovered/Resolved]

NARRATIVE: CASE EVENT DATE: 20200914
